FAERS Safety Report 10085329 (Version 3)
Quarter: 2014Q3

REPORT INFORMATION
  Report Type: Spontaneous
  Country: US (occurrence: US)
  Receive Date: 20140417
  Receipt Date: 20140904
  Transmission Date: 20150326
  Serious: Yes (Hospitalization, Other)
  Sender: FDA-Public Use
  Company Number: US-GILEAD-2014-0099891

PATIENT
  Age: 88 Year
  Sex: Female
  Weight: 75.28 kg

DRUGS (25)
  1. RANEXA [Suspect]
     Active Substance: RANOLAZINE
     Dosage: 500 MG, BID
     Route: 065
     Dates: start: 20120803, end: 20140209
  2. NITROGLYCERIN. [Concomitant]
     Active Substance: NITROGLYCERIN
  3. NORVASC [Concomitant]
     Active Substance: AMLODIPINE BESYLATE
  4. ECHINACEA                          /01323501/ [Concomitant]
  5. RANEXA [Suspect]
     Active Substance: RANOLAZINE
     Indication: ANGINA PECTORIS
     Dosage: 2000 MG, BID
     Route: 065
     Dates: start: 20140211, end: 20140212
  6. BAYER ASPIRIN [Concomitant]
     Active Substance: ASPIRIN
  7. ZOCOR [Concomitant]
     Active Substance: SIMVASTATIN
  8. VOLTAREN [Concomitant]
     Active Substance: DICLOFENAC SODIUM
  9. COZAAR [Concomitant]
     Active Substance: LOSARTAN POTASSIUM
  10. SYNTHROID [Concomitant]
     Active Substance: LEVOTHYROXINE SODIUM
  11. K-DUR [Concomitant]
     Active Substance: POTASSIUM CHLORIDE
  12. RANEXA [Suspect]
     Active Substance: RANOLAZINE
     Dosage: 1000 MG, BID
     Route: 065
     Dates: start: 20140210
  13. TRUSOPT [Concomitant]
     Active Substance: DORZOLAMIDE HYDROCHLORIDE
  14. PROZAC [Concomitant]
     Active Substance: FLUOXETINE HYDROCHLORIDE
     Dosage: UNK
     Dates: start: 2012
  15. VITAMIN B12 [Concomitant]
     Active Substance: CYANOCOBALAMIN
  16. VITAMIN D SUPPORT [Concomitant]
  17. FISH OIL [Concomitant]
     Active Substance: FISH OIL
  18. IMDUR [Concomitant]
     Active Substance: ISOSORBIDE MONONITRATE
     Dosage: 90 MG, UNK
  19. ALPHAGAN P [Concomitant]
     Active Substance: BRIMONIDINE TARTRATE
  20. ZANTAC [Concomitant]
     Active Substance: RANITIDINE HYDROCHLORIDE
  21. NORCO [Concomitant]
     Active Substance: ACETAMINOPHEN\HYDROCODONE BITARTRATE
  22. LASIX [Concomitant]
     Active Substance: FUROSEMIDE
  23. XALATAN [Concomitant]
     Active Substance: LATANOPROST
  24. VENTOLIN HFA [Concomitant]
     Active Substance: ALBUTEROL SULFATE
  25. LEVAQUIN [Concomitant]
     Active Substance: LEVOFLOXACIN

REACTIONS (5)
  - Toxic encephalopathy [Unknown]
  - Cerebrovascular accident [Recovered/Resolved]
  - Overdose [Recovered/Resolved]
  - Dysarthria [Recovered/Resolved]
  - Medication error [Recovered/Resolved]

NARRATIVE: CASE EVENT DATE: 20140211
